FAERS Safety Report 24203021 (Version 1)
Quarter: 2024Q3

REPORT INFORMATION
  Report Type: Report from Study
  Country: CA (occurrence: None)
  Receive Date: 20240813
  Receipt Date: 20240813
  Transmission Date: 20241016
  Serious: Yes (Other)
  Sender: ASTRAZENECA
  Company Number: 2022A204199

PATIENT
  Sex: Male

DRUGS (7)
  1. FASENRA [Suspect]
     Active Substance: BENRALIZUMAB
     Indication: Asthma
     Dosage: 30.0MG UNKNOWN
     Route: 058
     Dates: start: 20220329
  2. FASENRA [Suspect]
     Active Substance: BENRALIZUMAB
     Indication: Asthma
     Dosage: 30.0MG UNKNOWN
     Route: 058
     Dates: start: 20220428
  3. SPIRIVA RESPIMAT [Concomitant]
     Active Substance: TIOTROPIUM BROMIDE
     Dosage: 18 UG
  4. ADVAIR HFA [Concomitant]
     Active Substance: FLUTICASONE PROPIONATE\SALMETEROL XINAFOATE
     Dosage: 500 UG
  5. VENTOLIN [Concomitant]
     Active Substance: ALBUTEROL SULFATE
  6. PREDNISONE [Concomitant]
     Active Substance: PREDNISONE
  7. XOLAIR [Concomitant]
     Active Substance: OMALIZUMAB

REACTIONS (2)
  - Fall [Unknown]
  - Lower limb fracture [Unknown]
